FAERS Safety Report 17077802 (Version 1)
Quarter: 2019Q4

REPORT INFORMATION
  Report Type: Spontaneous
  Country: US (occurrence: US)
  Receive Date: 20191126
  Receipt Date: 20191126
  Transmission Date: 20200122
  Serious: No
  Sender: FDA-Public Use
  Company Number: US-AMGEN-USASP2019192792

PATIENT

DRUGS (3)
  1. PARICALCITOL. [Concomitant]
     Active Substance: PARICALCITOL
     Dosage: DECREASED DOSE
     Route: 042
  2. CINACALCET HCL [Suspect]
     Active Substance: CINACALCET HYDROCHLORIDE
     Indication: SECONDARY HYPERTHYROIDISM
     Dosage: 30 MILLIGRAM, QD IN THE EVENING WITH FOOD
     Route: 065
  3. PARICALCITOL. [Concomitant]
     Active Substance: PARICALCITOL
     Dosage: UNK
     Route: 042

REACTIONS (2)
  - Nausea [Recovered/Resolved]
  - Off label use [Unknown]
